FAERS Safety Report 12290474 (Version 1)
Quarter: 2016Q2

REPORT INFORMATION
  Report Type: Spontaneous
  Country: US (occurrence: US)
  Receive Date: 20160421
  Receipt Date: 20160421
  Transmission Date: 20160815
  Serious: No
  Sender: FDA-Public Use
  Company Number: US-ENDO PHARMACEUTICALS INC.-2016-001021

PATIENT
  Sex: Female
  Weight: 68.1 kg

DRUGS (2)
  1. TRIAMTERENE/ HCTZ [Concomitant]
     Indication: HYPERTENSION
  2. CLONIDINE HCL TABLETS 0.1MG [Suspect]
     Active Substance: CLONIDINE HYDROCHLORIDE
     Indication: HYPERTENSION
     Route: 048
     Dates: start: 2014, end: 20160107

REACTIONS (2)
  - Confusional state [Unknown]
  - Somnolence [Unknown]
